FAERS Safety Report 23633821 (Version 1)
Quarter: 2024Q1

REPORT INFORMATION
  Report Type: Spontaneous
  Country: US (occurrence: US)
  Receive Date: 20240314
  Receipt Date: 20240314
  Transmission Date: 20240410
  Serious: No
  Sender: FDA-Public Use
  Company Number: US-PFIZER INC-PV202400034862

PATIENT
  Age: 69 Year
  Sex: Male
  Weight: 103 kg

DRUGS (4)
  1. BOSULIF [Suspect]
     Active Substance: BOSUTINIB MONOHYDRATE
     Indication: Chronic myeloid leukaemia
     Dosage: UNK
     Route: 048
     Dates: start: 201610
  2. BOSULIF [Suspect]
     Active Substance: BOSUTINIB MONOHYDRATE
     Dosage: 500 MG DAILY
     Route: 048
     Dates: end: 20210111
  3. BOSULIF [Suspect]
     Active Substance: BOSUTINIB MONOHYDRATE
     Dosage: (500 MG TOTAL) BY MOUTH 1 (ONE) TIME EACH DAY TAKE WITH FOOD.
     Route: 048
     Dates: start: 20210613
  4. REVATIO [Concomitant]
     Active Substance: SILDENAFIL CITRATE
     Dosage: TAKE 3 TABLETS BY MOUTH IF NEEDED (PRIOR TO SEX.)
     Route: 048

REACTIONS (1)
  - Diarrhoea [Unknown]
